FAERS Safety Report 6198942-2 (Version None)
Quarter: 2009Q2

REPORT INFORMATION
  Report Type: 
  Country: None (occurrence: None)
  Receive Date: 20090522
  Receipt Date: 20090512
  Transmission Date: 20091009
  Serious: Yes (Other)
  Sender: FDA-Public Use
  Company Number: CA-JNJFOC-20090502482

PATIENT
  Sex: Male

DRUGS (6)
  1. INTELENCE [Suspect]
     Indication: HIV INFECTION
  2. EPIVIR [Suspect]
     Indication: HIV INFECTION
  3. VIDEX [Suspect]
     Indication: HIV INFECTION
  4. SUSTIVA [Suspect]
     Indication: HIV INFECTION
  5. APTIVUS [Suspect]
     Indication: HIV INFECTION
  6. AGENERASE [Suspect]
     Indication: HIV INFECTION

REACTIONS (3)
  - CONFUSIONAL STATE [None]
  - FATIGUE [None]
  - HEADACHE [None]
